FAERS Safety Report 5671774-7 (Version None)
Quarter: 2008Q2

REPORT INFORMATION
  Report Type: 
  Country: None (occurrence: None)
  Receive Date: 20080227
  Receipt Date: 20070719
  Transmission Date: 20081010
  Serious: Yes (Death)
  Sender: FDA-Public Use
  Company Number: HQWYE167220JUL07

PATIENT
  Age: 32 Year
  Sex: Male
  Weight: 88.53 kg

DRUGS (4)
  1. EFFEXOR [Suspect]
     Indication: DEPRESSION
     Dosage: 75 MG 1X PER 1 DAY, ORAL
     Route: 048
     Dates: start: 20061201
  2. LUNESTA [Concomitant]
  3. LEXAPRO [Concomitant]
  4. RESTORIL [Concomitant]

REACTIONS (1)
  - COMPLETED SUICIDE [None]
